FAERS Safety Report 9835190 (Version 1)
Quarter: 2014Q1

REPORT INFORMATION
  Report Type: Spontaneous
  Country: US (occurrence: US)
  Receive Date: 20140122
  Receipt Date: 20140122
  Transmission Date: 20141002
  Serious: No
  Sender: FDA-Public Use
  Company Number: US-BRISTOL-MYERS SQUIBB COMPANY-19852011

PATIENT
  Age: 75 Year
  Sex: Female
  Weight: 136.05 kg

DRUGS (2)
  1. ELIQUIS [Suspect]
  2. ASPIRIN [Suspect]

REACTIONS (1)
  - Haematuria [Unknown]
